FAERS Safety Report 4374083-1 (Version None)
Quarter: 2004Q2

REPORT INFORMATION
  Report Type: 
  Country: None (occurrence: None)
  Receive Date: 20040607
  Receipt Date: 20040504
  Transmission Date: 20050107
  Serious: Yes (Hospitalization)
  Sender: FDA-Public Use
  Company Number: DE-ROCHE-366711

PATIENT
  Age: 63 Year
  Sex: Female
  Weight: 65 kg

DRUGS (8)
  1. ROFERON-A [Suspect]
     Indication: MYELOPROLIFERATIVE DISORDER
     Route: 058
     Dates: start: 20040325, end: 20040418
  2. ROFERON-A [Suspect]
     Dosage: 2X4.5 MIO IE
     Route: 058
  3. ROFERON-A [Suspect]
     Route: 058
     Dates: start: 20040419
  4. NEBILET [Concomitant]
     Route: 048
  5. BIFITERAL [Concomitant]
  6. LASIX [Concomitant]
  7. SPIRO COMP RATIOPHARM [Concomitant]
     Route: 048
  8. LITALIR [Concomitant]
     Dates: start: 20000615

REACTIONS (7)
  - ASCITES [None]
  - GASTROINTESTINAL DISORDER [None]
  - GENERAL PHYSICAL HEALTH DETERIORATION [None]
  - HEPATIC CIRRHOSIS [None]
  - HEPATIC FAILURE [None]
  - HEPATOSPLENOMEGALY [None]
  - NAUSEA [None]
